FAERS Safety Report 5674184-1 (Version None)
Quarter: 2008Q1

REPORT INFORMATION
  Report Type: 
  Country: None (occurrence: None)
  Receive Date: 20080320
  Receipt Date: 20080317
  Transmission Date: 20080703
  Serious: Yes (Hospitalization)
  Sender: FDA-Public Use
  Company Number: IT-BRISTOL-MYERS SQUIBB COMPANY-14117055

PATIENT
  Age: 67 Year
  Sex: Female

DRUGS (1)
  1. ABILIFY [Suspect]
     Indication: DELUSIONAL DISORDER, UNSPECIFIED TYPE

REACTIONS (4)
  - CYANOSIS [None]
  - DYSPNOEA [None]
  - HYPOTENSION [None]
  - SYNCOPE [None]
